FAERS Safety Report 12178733 (Version 1)
Quarter: 2016Q1

REPORT INFORMATION
  Report Type: Spontaneous
  Country: US (occurrence: None)
  Receive Date: 20160314
  Receipt Date: 20160314
  Transmission Date: 20160526
  Serious: No
  Sender: FDA-Public Use
  Company Number: None

PATIENT
  Age: 69 Year
  Sex: Female

DRUGS (1)
  1. XELODA [Suspect]
     Active Substance: CAPECITABINE
     Dates: start: 201511

REACTIONS (3)
  - Fatigue [None]
  - Neuropathy peripheral [None]
  - Dry mouth [None]

NARRATIVE: CASE EVENT DATE: 20151120
